FAERS Safety Report 26047057 (Version 1)
Quarter: 2025Q4

REPORT INFORMATION
  Report Type: Spontaneous
  Country: US (occurrence: US)
  Receive Date: 20251114
  Receipt Date: 20251114
  Transmission Date: 20260117
  Serious: No
  Sender: OPTINOSE INC
  Company Number: US-OPTINOSE US, INC.-2025OPT000085

PATIENT
  Age: 43 Year
  Sex: Female

DRUGS (1)
  1. XHANCE [Suspect]
     Active Substance: FLUTICASONE PROPIONATE
     Indication: Product used for unknown indication
     Dosage: UNK, PLACE 1-2 PUFFS INTO THE NOSE DAILY AS NEEDED
     Route: 045
     Dates: start: 20240917

REACTIONS (3)
  - Vertigo [Unknown]
  - Epistaxis [Unknown]
  - Off label use [Unknown]

NARRATIVE: CASE EVENT DATE: 20240301
